FAERS Safety Report 25742512 (Version 1)
Quarter: 2025Q3

REPORT INFORMATION
  Report Type: Spontaneous
  Country: AU (occurrence: AU)
  Receive Date: 20250829
  Receipt Date: 20250829
  Transmission Date: 20251020
  Serious: Yes (Hospitalization)
  Sender: BRISTOL-MYERS SQUIBB COMPANY
  Company Number: AU-BRISTOL-MYERS SQUIBB COMPANY-2025-118249

PATIENT
  Sex: Female

DRUGS (1)
  1. ELIQUIS [Suspect]
     Active Substance: APIXABAN
     Indication: Product used for unknown indication
     Dosage: 5MG B.D.

REACTIONS (3)
  - Epistaxis [Recovered/Resolved]
  - Haemorrhage [Recovered/Resolved]
  - Skin laceration [Recovered/Resolved]

NARRATIVE: CASE EVENT DATE: 20250801
